FAERS Safety Report 8903509 (Version 4)
Quarter: 2014Q2

REPORT INFORMATION
  Report Type: Spontaneous
  Country: US (occurrence: US)
  Receive Date: 20121112
  Receipt Date: 20140610
  Transmission Date: 20141212
  Serious: Yes (Hospitalization, Other)
  Sender: FDA-Public Use
  Company Number: US-ASTRAZENECA-2012SE82805

PATIENT
  Age: 60 Year
  Sex: Female

DRUGS (22)
  1. NEXIUM [Suspect]
     Indication: GASTROOESOPHAGEAL REFLUX DISEASE
     Route: 048
  2. NEXIUM [Suspect]
     Indication: GASTROOESOPHAGEAL REFLUX DISEASE
     Route: 048
  3. NEXIUM [Suspect]
     Indication: GASTROOESOPHAGEAL REFLUX DISEASE
     Route: 048
     Dates: end: 201401
  4. NEXIUM [Suspect]
     Indication: GASTROOESOPHAGEAL REFLUX DISEASE
     Route: 048
  5. NEXIUM [Suspect]
     Indication: GASTROOESOPHAGEAL REFLUX DISEASE
     Route: 048
     Dates: start: 2004, end: 201312
  6. ATENOLOL [Suspect]
     Indication: BLOOD PRESSURE ABNORMAL
     Dosage: BID
     Route: 048
  7. LISINOPRIL [Suspect]
     Indication: BLOOD PRESSURE ABNORMAL
     Dosage: DAILY
     Route: 048
  8. PRILOSEC [Suspect]
     Indication: GASTROOESOPHAGEAL REFLUX DISEASE
     Dosage: DAILY
     Route: 048
  9. CHEMOTHERAPY [Suspect]
  10. OXYGEN [Concomitant]
  11. INSULIN [Concomitant]
  12. VERAPAMIL [Concomitant]
     Indication: BLOOD PRESSURE ABNORMAL
     Dosage: BID
     Route: 048
  13. POTASSIUM [Concomitant]
     Indication: MINERAL SUPPLEMENTATION
     Dosage: BID
     Route: 048
  14. METFORMIN [Concomitant]
     Indication: DIABETES MELLITUS
     Dosage: BID
     Route: 048
  15. LASIX [Concomitant]
     Indication: FLUID RETENTION
     Dosage: DAILY
     Route: 048
  16. LASIX [Concomitant]
     Indication: BLOOD PRESSURE ABNORMAL
     Dosage: DAILY
     Route: 048
  17. ASPIRIN [Concomitant]
     Indication: CEREBROVASCULAR ACCIDENT
  18. ASPIRIN [Concomitant]
     Indication: ISCHAEMIC HEART DISEASE PROPHYLAXIS
  19. PRAVASTATIN [Concomitant]
     Indication: BLOOD CHOLESTEROL ABNORMAL
     Dosage: NIGHT
     Route: 048
  20. UNKNOWN [Concomitant]
     Indication: FAECES HARD
     Dosage: BID
     Route: 048
  21. GENERIC FOR LORTAB [Concomitant]
     Indication: BONE PAIN
     Dosage: PRN
     Route: 048
  22. COUMADIN [Concomitant]
     Indication: THROMBOSIS
     Route: 048

REACTIONS (25)
  - Neoplasm malignant [Unknown]
  - Small cell lung cancer [Not Recovered/Not Resolved]
  - Bone cancer [Not Recovered/Not Resolved]
  - Thrombosis [Unknown]
  - Cerebrovascular accident [Recovered/Resolved with Sequelae]
  - Cerebral artery occlusion [Unknown]
  - Gastritis haemorrhagic [Unknown]
  - Decreased appetite [Recovered/Resolved]
  - Haematochezia [Unknown]
  - Gastrooesophageal reflux disease [Unknown]
  - Asthenia [Not Recovered/Not Resolved]
  - Weight decreased [Unknown]
  - Body height decreased [Unknown]
  - Fatigue [Not Recovered/Not Resolved]
  - Laryngitis [Recovered/Resolved]
  - Blood glucose fluctuation [Not Recovered/Not Resolved]
  - Red blood cell count decreased [Unknown]
  - Dyspnoea [Not Recovered/Not Resolved]
  - Diabetes mellitus [Unknown]
  - Chronic obstructive pulmonary disease [Unknown]
  - Nausea [Unknown]
  - White blood cell count decreased [Unknown]
  - Off label use [Unknown]
  - Drug ineffective [Unknown]
  - Drug dose omission [Unknown]
